FAERS Safety Report 9975808 (Version 2)
Quarter: 2014Q2

REPORT INFORMATION
  Report Type: Spontaneous
  Country: US (occurrence: US)
  Receive Date: 20140306
  Receipt Date: 20140403
  Transmission Date: 20141212
  Serious: Yes (Other)
  Sender: FDA-Public Use
  Company Number: US-PFIZER INC-2014063188

PATIENT
  Sex: Male

DRUGS (1)
  1. VENLAFAXINE HCL [Suspect]
     Dosage: UNK

REACTIONS (6)
  - Suicidal behaviour [Unknown]
  - Depression [Unknown]
  - Drug intolerance [Unknown]
  - Head discomfort [Unknown]
  - Social avoidant behaviour [Unknown]
  - Eye disorder [Unknown]
